FAERS Safety Report 6549119-X (Version None)
Quarter: 2010Q1

REPORT INFORMATION
  Report Type: 
  Country: None (occurrence: None)
  Receive Date: 20100119
  Receipt Date: 20100111
  Transmission Date: 20100710
  Serious: Yes (Hospitalization)
  Sender: FDA-Public Use
  Company Number: B0625658A

PATIENT
  Age: 61 Year
  Sex: Female

DRUGS (2)
  1. CEFUROXIME AXETIL [Suspect]
     Dosage: 250 MG / ORAL
     Route: 048
  2. ASTHMA MEDICATION [Concomitant]

REACTIONS (16)
  - ANAPHYLACTIC SHOCK [None]
  - ARTERIOSCLEROSIS CORONARY ARTERY [None]
  - BLOOD CHOLESTEROL INCREASED [None]
  - CONFUSIONAL STATE [None]
  - DIASTOLIC DYSFUNCTION [None]
  - DYSPNOEA [None]
  - FATIGUE [None]
  - GENERALISED ERYTHEMA [None]
  - KOUNIS SYNDROME [None]
  - LOW DENSITY LIPOPROTEIN INCREASED [None]
  - NAUSEA [None]
  - PARAESTHESIA [None]
  - PRURITUS [None]
  - TYPE 2 DIABETES MELLITUS [None]
  - VERTIGO [None]
  - VOMITING [None]
